FAERS Safety Report 14467405 (Version 1)
Quarter: 2018Q1

REPORT INFORMATION
  Report Type: Spontaneous
  Country: IT (occurrence: IT)
  Receive Date: 20180131
  Receipt Date: 20180131
  Transmission Date: 20180509
  Serious: Yes (Hospitalization)
  Sender: FDA-Public Use
  Company Number: IT-AUROBINDO-AUR-APL-2018-003431

PATIENT
  Age: 87 Year
  Sex: Female

DRUGS (4)
  1. DINTOINA [Concomitant]
     Active Substance: PHENYTOIN SODIUM
     Indication: PRODUCT USED FOR UNKNOWN INDICATION
     Dosage: ()
     Route: 048
  2. CLOPIDOGREL [Suspect]
     Active Substance: CLOPIDOGREL BISULFATE
     Indication: PLATELET AGGREGATION INHIBITION
     Dosage: 75 MG, ONCE A DAY
     Route: 048
     Dates: start: 20170101, end: 20171005
  3. VALSARTAN. [Suspect]
     Active Substance: VALSARTAN
     Indication: ACCELERATED HYPERTENSION
     Dosage: 80 MG, ONCE A DAY
     Route: 048
     Dates: start: 20170101, end: 20171005
  4. ESCITALOPRAM ALTER [Concomitant]
     Indication: PRODUCT USED FOR UNKNOWN INDICATION

REACTIONS (2)
  - Syncope [Unknown]
  - Asthenia [Unknown]

NARRATIVE: CASE EVENT DATE: 20171005
